FAERS Safety Report 14453664 (Version 1)
Quarter: 2018Q1

REPORT INFORMATION
  Report Type: Report from Study
  Country: US (occurrence: US)
  Receive Date: 20180129
  Receipt Date: 20180129
  Transmission Date: 20180509
  Serious: Yes (Hospitalization, Other)
  Sender: FDA-Public Use
  Company Number: US-BAYER-2018-011913

PATIENT
  Sex: Male

DRUGS (1)
  1. ADEMPAS [Suspect]
     Active Substance: RIOCIGUAT
     Dosage: UNK
     Route: 048

REACTIONS (6)
  - Hospitalisation [None]
  - Dizziness [None]
  - Tremor [None]
  - Loss of consciousness [None]
  - Nervousness [None]
  - Anxiety [None]
